FAERS Safety Report 25445580 (Version 1)
Quarter: 2025Q2

REPORT INFORMATION
  Report Type: Spontaneous
  Country: IT (occurrence: IT)
  Receive Date: 20250617
  Receipt Date: 20250617
  Transmission Date: 20250716
  Serious: Yes (Other)
  Sender: PFIZER
  Company Number: IT-PFIZER INC-PV202500067761

PATIENT
  Age: 63 Year
  Sex: Female

DRUGS (6)
  1. LORAZEPAM [Suspect]
     Active Substance: LORAZEPAM
     Indication: Depression
     Dates: start: 2021, end: 2021
  2. DULOXETINE [Suspect]
     Active Substance: DULOXETINE
     Indication: Depression
     Dosage: 60 MG, DAILY
     Dates: start: 202103, end: 2021
  3. DULOXETINE [Suspect]
     Active Substance: DULOXETINE
     Dosage: 90 MG, DAILY
     Dates: start: 2021, end: 2021
  4. DULOXETINE [Suspect]
     Active Substance: DULOXETINE
     Dosage: 120 MG, DAILY
     Dates: start: 2021, end: 2021
  5. PREGABALIN [Suspect]
     Active Substance: PREGABALIN
     Indication: Depression
     Dosage: 75 MG, DAILY
     Dates: start: 202103, end: 2021
  6. PREGABALIN [Suspect]
     Active Substance: PREGABALIN
     Dosage: 75 MG, 2X/DAY
     Dates: start: 2021, end: 2021

REACTIONS (2)
  - Therapeutic product effect incomplete [Unknown]
  - Weight increased [Unknown]

NARRATIVE: CASE EVENT DATE: 20210101
